FAERS Safety Report 6184853-5 (Version None)
Quarter: 2009Q2

REPORT INFORMATION
  Report Type: 
  Country: None (occurrence: None)
  Receive Date: 20090508
  Receipt Date: 20080404
  Transmission Date: 20091009
  Serious: No
  Sender: FDA-Public Use
  Company Number: US-BAXTER-2008BH002801

PATIENT
  Sex: Female
  Weight: 96 kg

DRUGS (1)
  1. HEPARIN SODIUM INJECTION [Suspect]
     Indication: DRUG USE FOR UNKNOWN INDICATION
     Route: 042
     Dates: end: 20080306

REACTIONS (4)
  - DIARRHOEA [None]
  - FLANK PAIN [None]
  - MUSCLE SPASMS [None]
  - VOMITING [None]
